FAERS Safety Report 17249586 (Version 5)
Quarter: 2020Q1

REPORT INFORMATION
  Report Type: Report from Study
  Country: None (occurrence: US)
  Receive Date: 20200108
  Receipt Date: 20200224
  Transmission Date: 20200409
  Serious: Yes (Other)
  Sender: FDA-Public Use
  Company Number: US-ABBVIE-20K-163-3222128-00

PATIENT
  Age: 31 Year
  Sex: Female

DRUGS (3)
  1. HUMIRA [Suspect]
     Active Substance: ADALIMUMAB
     Indication: CROHN^S DISEASE
     Route: 058
     Dates: start: 201912
  2. HUMIRA [Suspect]
     Active Substance: ADALIMUMAB
     Indication: CROHN^S DISEASE
     Dosage: DAY 1
     Route: 058
     Dates: start: 20191109, end: 20191109
  3. HUMIRA [Suspect]
     Active Substance: ADALIMUMAB
     Dosage: DAY 15
     Route: 058
     Dates: start: 20191123, end: 20191123

REACTIONS (31)
  - Adrenal neoplasm [Unknown]
  - Abdominal pain [Not Recovered/Not Resolved]
  - Diarrhoea [Not Recovered/Not Resolved]
  - Fistula [Unknown]
  - Injection site exfoliation [Unknown]
  - Depressed mood [Not Recovered/Not Resolved]
  - Rash macular [Unknown]
  - Decreased appetite [Recovering/Resolving]
  - Fear [Not Recovered/Not Resolved]
  - Insomnia [Recovering/Resolving]
  - Hypertension [Not Recovered/Not Resolved]
  - Palpitations [Unknown]
  - Loss of personal independence in daily activities [Not Recovered/Not Resolved]
  - Blood pressure increased [Unknown]
  - Constipation [Not Recovered/Not Resolved]
  - Migraine [Unknown]
  - Injection site pruritus [Unknown]
  - Chills [Unknown]
  - Oropharyngeal discomfort [Unknown]
  - Insomnia [Recovering/Resolving]
  - Injection site vesicles [Recovered/Resolved]
  - Nausea [Not Recovered/Not Resolved]
  - Pain of skin [Unknown]
  - Rhinorrhoea [Unknown]
  - Fatigue [Recovering/Resolving]
  - Malaise [Unknown]
  - Heart rate increased [Not Recovered/Not Resolved]
  - Injection site pruritus [Unknown]
  - Feeling abnormal [Recovering/Resolving]
  - Contusion [Recovered/Resolved]
  - Hyperhidrosis [Unknown]

NARRATIVE: CASE EVENT DATE: 2019
